FAERS Safety Report 5590254-0 (Version None)
Quarter: 2008Q1

REPORT INFORMATION
  Report Type: 
  Country: None (occurrence: None)
  Receive Date: 20080114
  Receipt Date: 20080109
  Transmission Date: 20080703
  Serious: Yes (Hospitalization)
  Sender: FDA-Public Use
  Company Number: BE-ASTRAZENECA-2007AC02338

PATIENT
  Age: 12575 Day
  Sex: Female
  Weight: 69 kg

DRUGS (4)
  1. SEROQUEL [Suspect]
     Indication: SCHIZOPHRENIA
     Route: 048
     Dates: start: 20021201
  2. SEROQUEL [Suspect]
     Dosage: DOSE REDUCED
     Route: 048
     Dates: end: 20071101
  3. NEUROFEN [Concomitant]
     Indication: MIGRAINE
     Dosage: DOSE REPORTED AS +/- 4 COMPR. X2 / MOIS
     Route: 048
  4. ASPIRIN [Concomitant]
     Indication: MIGRAINE
     Dosage: 500 MG X2 / MOIS
     Route: 048

REACTIONS (1)
  - THROMBOCYTOPENIA [None]
